FAERS Safety Report 4284213-8 (Version None)
Quarter: 2004Q1

REPORT INFORMATION
  Report Type: 
  Country: None (occurrence: None)
  Receive Date: 20040130
  Receipt Date: 20040119
  Transmission Date: 20041129
  Serious: Yes (Hospitalization)
  Sender: FDA-Public Use
  Company Number: JP-JNJFOC-20040103675

PATIENT
  Age: 29 Year
  Sex: Female
  Weight: 38 kg

DRUGS (8)
  1. REMICADE [Suspect]
     Indication: CROHN'S DISEASE
     Dosage: 5 MG/KG, 1 IN 1 AS NECESSARY, INTRAVENOUS DRIP
     Route: 041
     Dates: start: 20030624, end: 20030624
  2. REMICADE [Suspect]
     Indication: CROHN'S DISEASE
     Dosage: 5 MG/KG, 1 IN 1 AS NECESSARY, INTRAVENOUS DRIP
     Route: 041
     Dates: start: 20030715, end: 20030715
  3. REMICADE [Suspect]
     Indication: CROHN'S DISEASE
     Dosage: 5 MG/KG, 1 IN 1 AS NECESSARY, INTRAVENOUS DRIP
     Route: 041
     Dates: start: 20030401
  4. PREDNISOLONE [Concomitant]
  5. HYDROCORTON (HYDROCORTISONE) [Concomitant]
  6. MERCAPTOPURINE [Concomitant]
  7. ENTERAL NUTRITION [Concomitant]
  8. PENTASA [Concomitant]

REACTIONS (3)
  - ABDOMINAL PAIN [None]
  - APPENDICITIS [None]
  - PERITONITIS [None]
